FAERS Safety Report 9739374 (Version 1)
Quarter: 2013Q4

REPORT INFORMATION
  Report Type: Spontaneous
  Country: US (occurrence: US)
  Receive Date: 20131209
  Receipt Date: 20131209
  Transmission Date: 20140711
  Serious: No
  Sender: FDA-Public Use
  Company Number: US-GLAXOSMITHKLINE-A1022051A

PATIENT
  Age: 46 Year
  Sex: Male

DRUGS (10)
  1. AVANDAMET [Suspect]
     Indication: TYPE 2 DIABETES MELLITUS
     Dosage: 1TAB TWICE PER DAY
     Route: 048
     Dates: start: 2008
  2. LISINOPRIL [Concomitant]
  3. NASONEX [Concomitant]
  4. DEXILANT [Concomitant]
  5. ASACOL [Concomitant]
  6. PRAVASTATIN SODIUM [Concomitant]
  7. FLONASE [Concomitant]
  8. PREDNISONE [Concomitant]
  9. KEFLEX [Concomitant]
  10. B-12 [Concomitant]

REACTIONS (4)
  - Hypersomnia [Not Recovered/Not Resolved]
  - Asthenia [Unknown]
  - Hunger [Unknown]
  - Hyperphagia [Unknown]
